FAERS Safety Report 5533338-5 (Version None)
Quarter: 2007Q4

REPORT INFORMATION
  Report Type: 
  Country: None (occurrence: None)
  Receive Date: 20071204
  Receipt Date: 20071127
  Transmission Date: 20080405
  Serious: Yes (Other)
  Sender: FDA-Public Use
  Company Number: US-JNJFOC-20070900758

PATIENT
  Sex: Male
  Weight: 65.77 kg

DRUGS (9)
  1. LEVAQUIN [Suspect]
     Indication: STAPHYLOCOCCAL BACTERAEMIA
     Route: 048
  2. LEVAQUIN [Suspect]
     Indication: CENTRAL LINE INFECTION
     Route: 048
  3. PRIMACOR [Concomitant]
     Indication: CARDIAC DISORDER
     Route: 042
  4. LASIX [Concomitant]
     Indication: DIURETIC THERAPY
     Route: 048
  5. COREG [Concomitant]
     Indication: CARDIAC FAILURE
     Route: 048
  6. METFORMIN HCL [Concomitant]
     Indication: DIABETES MELLITUS
     Route: 048
  7. MEVACOR [Concomitant]
     Indication: BLOOD CHOLESTEROL
     Route: 048
  8. COUMADIN [Concomitant]
     Indication: ANTICOAGULANT THERAPY
     Route: 048
  9. UNKNOWN MEDICATION [Concomitant]
     Indication: CARDIAC DISORDER
     Route: 065

REACTIONS (3)
  - ARTHRALGIA [None]
  - JOINT SWELLING [None]
  - TENDON RUPTURE [None]
